FAERS Safety Report 5446173-3 (Version None)
Quarter: 2007Q3

REPORT INFORMATION
  Report Type: 
  Country: None (occurrence: None)
  Receive Date: 20070731
  Receipt Date: 20060912
  Transmission Date: 20080115
  Serious: Yes (Other)
  Sender: FDA-Public Use
  Company Number: US-2006-026921

PATIENT
  Age: 34 Year
  Sex: Male
  Weight: 98 kg

DRUGS (1)
  1. MAGNEVIST INJECTION (GADOPENATETATE DIMEGLUMINE) INJECTION [Suspect]
     Indication: NUCLEAR MAGNETIC RESONANCE IMAGING
     Dosage: 2ML/KG, INTRAVENOUS
     Route: 042

REACTIONS (10)
  - ANAPHYLACTIC REACTION [None]
  - COLD SWEAT [None]
  - DIZZINESS [None]
  - ERYTHEMA [None]
  - HOT FLUSH [None]
  - NAUSEA [None]
  - OBSTRUCTIVE AIRWAYS DISORDER [None]
  - PAIN IN EXTREMITY [None]
  - PARAESTHESIA [None]
  - SWOLLEN TONGUE [None]
